FAERS Safety Report 4336902-4 (Version None)
Quarter: 2004Q2

REPORT INFORMATION
  Report Type: 
  Country: None (occurrence: None)
  Receive Date: 20040412
  Receipt Date: 20040408
  Transmission Date: 20050107
  Serious: Yes (Other)
  Sender: FDA-Public Use
  Company Number: GB-MERCK-0404GBR00068

PATIENT
  Age: 2 Year
  Sex: Male

DRUGS (2)
  1. ALBUTEROL [Concomitant]
     Indication: ASTHMA
     Route: 055
     Dates: start: 20040206
  2. SINGULAIR [Suspect]
     Indication: ASTHMA
     Route: 048
     Dates: start: 20040318, end: 20040330

REACTIONS (4)
  - AGGRESSION [None]
  - HALLUCINATION [None]
  - SLEEP DISORDER [None]
  - THIRST [None]
